FAERS Safety Report 9784918 (Version 2)
Quarter: 2014Q1

REPORT INFORMATION
  Report Type: Spontaneous
  Country: US (occurrence: US)
  Receive Date: 20131227
  Receipt Date: 20140114
  Transmission Date: 20141002
  Serious: Yes (Life-Threatening, Other)
  Sender: FDA-Public Use
  Company Number: US-009507513-1312USA011030

PATIENT
  Age: 36 Year
  Sex: Male

DRUGS (7)
  1. REBETOL [Suspect]
     Indication: HEPATITIS C
     Dosage: 800 UNK, UNK
     Route: 048
  2. PEGINTERFERON ALFA-2B [Suspect]
     Indication: HEPATITIS C
     Dosage: 180 MICROGRAM, QW
     Route: 058
  3. TELAPREVIR [Suspect]
     Indication: HEPATITIS C
     Dosage: 2 DF, Q8H
  4. ATAZANAVIR SULFATE [Concomitant]
     Indication: ANTIRETROVIRAL THERAPY
  5. RITONAVIR [Concomitant]
     Indication: ANTIRETROVIRAL THERAPY
  6. EMTRICITABINE (+) TENOFOVIR DISOPROXIL FUMARATE [Concomitant]
     Indication: ANTIRETROVIRAL THERAPY
  7. EMTRICITABINE (+) RILPIVIRINE HYDROCHLORIDE (+) TENOFOVIR DISOPROXIL F [Concomitant]
     Indication: ANTIRETROVIRAL THERAPY

REACTIONS (2)
  - Psychotic disorder [Unknown]
  - Neutropenia [Unknown]
